FAERS Safety Report 4467087-1 (Version None)
Quarter: 2004Q4

REPORT INFORMATION
  Report Type: 
  Country: None (occurrence: None)
  Receive Date: 20041004
  Receipt Date: 20041004
  Transmission Date: 20050328
  Serious: Yes (Hospitalization)
  Sender: FDA-Public Use
  Company Number: None

PATIENT
  Age: 55 Year
  Sex: Male
  Weight: 36.7414 kg

DRUGS (8)
  1. LEXAPRO [Suspect]
     Indication: DEPRESSION
     Dosage: 10 MG ONCE DAILY
  2. TRILEPTAL [Suspect]
     Indication: CONVULSION
     Dosage: MG BID
     Dates: start: 20040301
  3. LEVAQUIN [Concomitant]
  4. PREVACID [Concomitant]
  5. ALBUTEROL [Concomitant]
  6. TRILEPTAL [Concomitant]
  7. REMERON [Concomitant]
  8. LEXAPRO [Concomitant]

REACTIONS (8)
  - ABNORMAL BEHAVIOUR [None]
  - BLOOD PRESSURE DECREASED [None]
  - FAECES DISCOLOURED [None]
  - HEPATIC ENZYME INCREASED [None]
  - MYOPATHY [None]
  - PNEUMONIA [None]
  - RESPIRATORY DISORDER [None]
  - WEIGHT DECREASED [None]
